FAERS Safety Report 8579137-1 (Version None)
Quarter: 2012Q3

REPORT INFORMATION
  Report Type: 
  Country: None (occurrence: None)
  Receive Date: 20120808
  Receipt Date: 20120801
  Transmission Date: 20120928
  Serious: Yes (Other)
  Sender: FDA-Public Use
  Company Number: US-ABBOTT-12P-163-0939532-00

PATIENT
  Sex: Female
  Weight: 59.02 kg

DRUGS (8)
  1. METHOTREXATE [Suspect]
     Dosage: WEEKLY
     Route: 048
  2. RAMIPRIL [Concomitant]
     Indication: PRODUCT USED FOR UNKNOWN INDICATION
  3. METHOTREXATE [Suspect]
     Route: 048
  4. LIPITOR [Concomitant]
     Indication: PRODUCT USED FOR UNKNOWN INDICATION
  5. HUMIRA [Suspect]
     Indication: RHEUMATOID ARTHRITIS
     Route: 058
     Dates: start: 20090812, end: 20120501
  6. METHOTREXATE [Suspect]
     Indication: RHEUMATOID ARTHRITIS
     Dosage: WEEKLY
     Route: 048
     Dates: start: 20090801
  7. METOPROLOL TARTRATE [Concomitant]
     Indication: HYPERTENSION
  8. ASPIRIN [Concomitant]
     Indication: PRODUCT USED FOR UNKNOWN INDICATION

REACTIONS (10)
  - NON-HODGKIN'S LYMPHOMA [None]
  - WEIGHT DECREASED [None]
  - PLEURAL EFFUSION [None]
  - FATIGUE [None]
  - NIGHT SWEATS [None]
  - OSTEOPENIA [None]
  - ATRIAL FIBRILLATION [None]
  - LYMPHADENOPATHY [None]
  - ANAEMIA [None]
  - PYREXIA [None]
